FAERS Safety Report 12147465 (Version 1)
Quarter: 2016Q1

REPORT INFORMATION
  Report Type: Spontaneous
  Country: US (occurrence: US)
  Receive Date: 20160304
  Receipt Date: 20160304
  Transmission Date: 20160526
  Serious: Yes (Hospitalization)
  Sender: FDA-Public Use
  Company Number: US-TEVA-640147USA

PATIENT
  Age: 6 Year
  Sex: Male

DRUGS (1)
  1. AZITHROMYCIN ANHYDROUS. [Suspect]
     Active Substance: AZITHROMYCIN ANHYDROUS
     Dosage: 200MG-5ML

REACTIONS (13)
  - Pain in extremity [Unknown]
  - Pyrexia [Unknown]
  - Scar [Unknown]
  - Fatigue [Unknown]
  - Pruritus [Unknown]
  - Strabismus [Unknown]
  - Erythema [Unknown]
  - Swelling [Unknown]
  - Headache [Unknown]
  - Pain [Unknown]
  - Scab [Unknown]
  - Urticaria [Unknown]
  - Myalgia [Unknown]
